FAERS Safety Report 17464107 (Version 6)
Quarter: 2020Q2

REPORT INFORMATION
  Report Type: Spontaneous
  Country: JP (occurrence: JP)
  Receive Date: 20200226
  Receipt Date: 20200427
  Transmission Date: 20200713
  Serious: Yes (Hospitalization, Other)
  Sender: FDA-Public Use
  Company Number: JP-BRISTOL-MYERS SQUIBB COMPANY-BMS-2020-015597

PATIENT
  Age: 69 Year
  Sex: Male
  Weight: 61.2 kg

DRUGS (9)
  1. OPDIVO [Suspect]
     Active Substance: NIVOLUMAB
     Indication: PRODUCT USED FOR UNKNOWN INDICATION
     Dosage: 240 MILLIGRAM
     Route: 041
     Dates: start: 20200225
  2. GASTROM [Concomitant]
     Active Substance: ECABET SODIUM
     Indication: GASTRIC CANCER
     Dosage: 1.5 GRAM, Q12H
     Route: 048
  3. REBAMIPIDE [Concomitant]
     Active Substance: REBAMIPIDE
     Indication: GASTRIC CANCER
     Dosage: 100 MILLIGRAM, Q8H
     Route: 048
  4. NEXIUM [Concomitant]
     Active Substance: ESOMEPRAZOLE MAGNESIUM
     Indication: GASTRIC CANCER
     Dosage: 20 MILLIGRAM, QD
     Route: 048
  5. MECOBALAMIN [Concomitant]
     Active Substance: METHYLCOBALAMIN
     Indication: PROPHYLAXIS
     Dosage: 0.5 MILLIGRAM, Q8H
     Route: 048
  6. KETOPROFEN. [Concomitant]
     Active Substance: KETOPROFEN
     Indication: PROPHYLAXIS
     Dosage: 20 MG, PRN
     Route: 062
  7. STROCAIN [OXETACAINE] [Concomitant]
     Indication: GASTRIC CANCER
     Dosage: 5 MILLIGRAM, Q8H
     Route: 048
  8. OPDIVO [Suspect]
     Active Substance: NIVOLUMAB
     Indication: GASTRIC CANCER
     Dosage: 240 MILLIGRAM
     Route: 041
     Dates: start: 20181220, end: 20200123
  9. FERROUS CITRATE NA [Concomitant]
     Active Substance: SODIUM FERROUS CITRATE
     Indication: GASTRIC CANCER
     Dosage: 50 MILLIGRAM, Q12H
     Route: 048

REACTIONS (6)
  - Hyponatraemia [Unknown]
  - Malaise [Unknown]
  - Adrenal insufficiency [Not Recovered/Not Resolved]
  - Nausea [Unknown]
  - Eosinophil count increased [Unknown]
  - Hypopituitarism [Recovering/Resolving]

NARRATIVE: CASE EVENT DATE: 20200206
